FAERS Safety Report 23445754 (Version 4)
Quarter: 2024Q2

REPORT INFORMATION
  Report Type: Report from Study
  Country: US (occurrence: US)
  Receive Date: 20240126
  Receipt Date: 20240625
  Transmission Date: 20240716
  Serious: Yes (Hospitalization)
  Sender: FDA-Public Use
  Company Number: US-BoehringerIngelheim-2024-BI-003484

PATIENT
  Age: 84 Year
  Sex: Male

DRUGS (2)
  1. OFEV [Suspect]
     Active Substance: NINTEDANIB
     Indication: Idiopathic pulmonary fibrosis
     Route: 048
     Dates: start: 20230805
  2. OFEV [Suspect]
     Active Substance: NINTEDANIB
     Dates: start: 20240117

REACTIONS (10)
  - Haemorrhoidal haemorrhage [Recovering/Resolving]
  - Pulmonary arterial hypertension [Recovering/Resolving]
  - Fall [Recovering/Resolving]
  - Idiopathic pulmonary fibrosis [Recovering/Resolving]
  - Dyspnoea [Not Recovered/Not Resolved]
  - Blood pressure abnormal [Recovering/Resolving]
  - Muscular weakness [Not Recovered/Not Resolved]
  - Constipation [Not Recovered/Not Resolved]
  - Decreased appetite [Not Recovered/Not Resolved]
  - Fatigue [Not Recovered/Not Resolved]

NARRATIVE: CASE EVENT DATE: 20240101
